FAERS Safety Report 8316527-6 (Version None)
Quarter: 2012Q2

REPORT INFORMATION
  Report Type: 
  Country: None (occurrence: None)
  Receive Date: 20120427
  Receipt Date: 20120420
  Transmission Date: 20120825
  Serious: Yes (Other)
  Sender: FDA-Public Use
  Company Number: PHHY2012JP025103

PATIENT
  Age: 50 Year
  Sex: Female

DRUGS (1)
  1. ZOLEDRONIC [Suspect]
     Indication: METASTASES TO BONE
     Dosage: 4 MG QMO
     Route: 041

REACTIONS (3)
  - PAIN IN EXTREMITY [None]
  - FALL [None]
  - FEMUR FRACTURE [None]
